FAERS Safety Report 6688083-X (Version None)
Quarter: 2010Q2

REPORT INFORMATION
  Report Type: 
  Country: None (occurrence: None)
  Receive Date: 20100420
  Receipt Date: 20100415
  Transmission Date: 20101027
  Serious: Yes (Hospitalization, Other)
  Sender: FDA-Public Use
  Company Number: US-ASTRAZENECA-2005UW01649

PATIENT
  Age: 76 Year
  Sex: Female
  Weight: 97.1 kg

DRUGS (6)
  1. ARIMIDEX [Suspect]
     Indication: BREAST CANCER IN SITU
     Route: 048
     Dates: start: 20020601, end: 20100318
  2. SYNTHROID [Concomitant]
  3. TYLENOL (CAPLET) [Concomitant]
  4. ACTONEL [Concomitant]
  5. FOSAMAX [Concomitant]
  6. CALCIUM SUPPLEMENTS [Concomitant]

REACTIONS (8)
  - ALOPECIA [None]
  - ARTHRALGIA [None]
  - BUNDLE BRANCH BLOCK [None]
  - GAIT DISTURBANCE [None]
  - OEDEMA PERIPHERAL [None]
  - OSTEOPOROSIS [None]
  - SPINAL LAMINECTOMY [None]
  - VAGINAL HAEMORRHAGE [None]
